FAERS Safety Report 14263231 (Version 5)
Quarter: 2018Q1

REPORT INFORMATION
  Report Type: Report from Study
  Country: GB (occurrence: GB)
  Receive Date: 20171208
  Receipt Date: 20180315
  Transmission Date: 20180508
  Serious: Yes (Other)
  Sender: FDA-Public Use
  Company Number: GB-JNJFOC-20170905218

PATIENT
  Age: 62 Year
  Sex: Male

DRUGS (2)
  1. SIMPONI [Suspect]
     Active Substance: GOLIMUMAB
     Indication: PSORIATIC ARTHROPATHY
     Route: 058
  2. SIMPONI [Suspect]
     Active Substance: GOLIMUMAB
     Indication: PSORIASIS
     Route: 058

REACTIONS (9)
  - Therapeutic response shortened [Unknown]
  - Cellulitis [Recovered/Resolved]
  - Back pain [Unknown]
  - Arthralgia [Unknown]
  - Psoriasis [Unknown]
  - Sleep apnoea syndrome [Unknown]
  - Injection site bruising [Recovering/Resolving]
  - Anxiety [Unknown]
  - Therapeutic response decreased [Unknown]

NARRATIVE: CASE EVENT DATE: 2017
